FAERS Safety Report 8143425-3 (Version None)
Quarter: 2012Q1

REPORT INFORMATION
  Report Type: 
  Country: None (occurrence: None)
  Receive Date: 20120215
  Receipt Date: 20120215
  Transmission Date: 20120608
  Serious: Yes (Other)
  Sender: FDA-Public Use
  Company Number: None

PATIENT
  Age: 58 Year
  Sex: Male
  Weight: 99.8 kg

DRUGS (2)
  1. OMEPRAZOLE [Suspect]
     Dosage: 40 MG QD OPO
     Route: 048
     Dates: start: 20080101, end: 20090101
  2. PREVACID [Suspect]
     Dosage: 30MG QD PO
     Route: 048
     Dates: start: 20080101, end: 20090101

REACTIONS (3)
  - DRUG INEFFECTIVE [None]
  - RASH [None]
  - PRODUCT SUBSTITUTION ISSUE [None]
